FAERS Safety Report 23981313 (Version 4)
Quarter: 2025Q1

REPORT INFORMATION
  Report Type: Spontaneous
  Country: AU (occurrence: AU)
  Receive Date: 20240617
  Receipt Date: 20250129
  Transmission Date: 20250409
  Serious: Yes (Other)
  Sender: MYLAN
  Company Number: AU-MYLANLABS-2024M1040724

PATIENT
  Sex: Female

DRUGS (4)
  1. CLOZARIL [Suspect]
     Active Substance: CLOZAPINE
     Indication: Schizophrenia
     Dosage: 125 MILLIGRAM, QD (100 MG TAB PLUS 25 MG TAB; DAILY)
     Route: 048
     Dates: start: 20041104
  2. CLOZARIL [Suspect]
     Active Substance: CLOZAPINE
     Route: 048
  3. LITHIUM [Suspect]
     Active Substance: LITHIUM
     Indication: Product used for unknown indication
     Dosage: 2 DOSAGE FORM, QD (2 TABLETS IN THE EVENING)
     Route: 065
  4. PALIPERIDONE [Suspect]
     Active Substance: PALIPERIDONE
     Indication: Product used for unknown indication
     Dosage: 1 DOSAGE FORM, MONTHLY (1 INJECTION MONTHLY)
     Route: 030

REACTIONS (2)
  - Breast cancer [Unknown]
  - Blood iron decreased [Unknown]
